FAERS Safety Report 13049167 (Version 1)
Quarter: 2016Q4

REPORT INFORMATION
  Report Type: Spontaneous
  Country: GB (occurrence: GB)
  Receive Date: 20161221
  Receipt Date: 20161221
  Transmission Date: 20170207
  Serious: Yes (Hospitalization)
  Sender: FDA-Public Use
  Company Number: GB-SUN PHARMACEUTICAL INDUSTRIES LTD-2016RR-129402

PATIENT
  Age: 54 Year
  Sex: Female
  Weight: 77 kg

DRUGS (1)
  1. ATORVASTATIN [Suspect]
     Active Substance: ATORVASTATIN
     Indication: PRODUCT USED FOR UNKNOWN INDICATION
     Dosage: 20 MG, QD, AT NIGHT.
     Route: 048

REACTIONS (10)
  - Pruritus [Unknown]
  - Chromaturia [Unknown]
  - Dizziness [Unknown]
  - Vomiting [Recovered/Resolved]
  - Dyspepsia [Unknown]
  - Myalgia [Unknown]
  - Malaise [Unknown]
  - Jaundice [Recovering/Resolving]
  - Drug-induced liver injury [Unknown]
  - Pollakiuria [Unknown]
